FAERS Safety Report 10186471 (Version 1)
Quarter: 2014Q2

REPORT INFORMATION
  Report Type: Spontaneous
  Country: US (occurrence: US)
  Receive Date: 20140521
  Receipt Date: 20140521
  Transmission Date: 20141212
  Serious: No
  Sender: FDA-Public Use
  Company Number: US-ASTRAZENECA-2013SE82768

PATIENT
  Age: 32939 Day
  Sex: Male
  Weight: 77.1 kg

DRUGS (5)
  1. PULMICORT FLEXHALER [Suspect]
     Indication: ASTHMA
     Dosage: PRESCRIBED TWO PUFFS TO START AND THEN ONE PUFF TWICE DAILY
     Route: 055
     Dates: start: 20131108
  2. PULMICORT FLEXHALER [Suspect]
     Indication: WHEEZING
     Dosage: PRESCRIBED TWO PUFFS TO START AND THEN ONE PUFF TWICE DAILY
     Route: 055
     Dates: start: 20131108
  3. PULMICORT FLEXHALER [Suspect]
     Indication: COUGH
     Dosage: PRESCRIBED TWO PUFFS TO START AND THEN ONE PUFF TWICE DAILY
     Route: 055
     Dates: start: 20131108
  4. MORPHINE [Suspect]
  5. PRO AIR HFA [Concomitant]
     Indication: INHALATION THERAPY
     Dosage: NR PRN

REACTIONS (4)
  - Drug hypersensitivity [Unknown]
  - Drug dose omission [Unknown]
  - Off label use [Unknown]
  - Wrong technique in drug usage process [Unknown]
